FAERS Safety Report 20053474 (Version 2)
Quarter: 2021Q4

REPORT INFORMATION
  Report Type: Spontaneous
  Country: BR (occurrence: BR)
  Receive Date: 20211110
  Receipt Date: 20211116
  Transmission Date: 20220304
  Serious: Yes (Hospitalization, Other)
  Sender: FDA-Public Use
  Company Number: BR-PFIZER INC-202101493887

PATIENT
  Age: 62 Year
  Sex: Female

DRUGS (11)
  1. VENLAFAXINE HYDROCHLORIDE [Suspect]
     Active Substance: VENLAFAXINE HYDROCHLORIDE
     Indication: Panic disorder
     Dosage: ONE TABLET IN THE MORNING
     Route: 048
     Dates: start: 2016
  2. VENLAFAXINE HYDROCHLORIDE [Suspect]
     Active Substance: VENLAFAXINE HYDROCHLORIDE
     Indication: Major depression
  3. HYDROCHLOROTHIAZIDE [Concomitant]
     Active Substance: HYDROCHLOROTHIAZIDE
     Indication: Fluid retention
     Dosage: 1X/DAY
     Dates: start: 2021
  4. TRAZODONE HYDROCHLORIDE [Concomitant]
     Active Substance: TRAZODONE HYDROCHLORIDE
     Indication: Insomnia
     Dosage: ONCE A DAY, IN THE EVENING
     Dates: start: 2016
  5. ONDANSETRON HYDROCHLORIDE [Concomitant]
     Active Substance: ONDANSETRON HYDROCHLORIDE
     Indication: Nausea
     Dosage: 1X/DAY
     Dates: start: 2021
  6. FLORATIL [SACCHAROMYCES BOULARDII] [Concomitant]
     Indication: Gastrointestinal disorder
     Dosage: 1X/DAY
     Dates: start: 2021
  7. BETAHISTINE [Concomitant]
     Active Substance: BETAHISTINE
     Dosage: 1X/DAY
     Dates: start: 2021
  8. PATZ [Concomitant]
     Dosage: 1X/DAY
     Dates: start: 2021
  9. TYLENOL [Concomitant]
     Active Substance: ACETAMINOPHEN
     Dosage: 1X/DAY
     Dates: start: 2021
  10. FEMARA [Concomitant]
     Active Substance: LETROZOLE
     Dosage: 1X/DAY
     Dates: start: 2021
  11. VERMIL [MEBENDAZOLE] [Concomitant]
     Dosage: 1X/DAY
     Dates: start: 2021

REACTIONS (6)
  - Neoplasm malignant [Recovering/Resolving]
  - Metastasis [Recovering/Resolving]
  - COVID-19 [Recovered/Resolved]
  - Arthralgia [Not Recovered/Not Resolved]
  - Joint swelling [Not Recovered/Not Resolved]
  - Gait disturbance [Not Recovered/Not Resolved]

NARRATIVE: CASE EVENT DATE: 20210201
